FAERS Safety Report 10855999 (Version 1)
Quarter: 2015Q1

REPORT INFORMATION
  Report Type: Spontaneous
  Country: US (occurrence: None)
  Receive Date: 20150218
  Receipt Date: 20150218
  Transmission Date: 20150721
  Serious: No
  Sender: FDA-Public Use
  Company Number: None

PATIENT
  Age: 73 Year
  Sex: Female
  Weight: 120.2 kg

DRUGS (10)
  1. LISINOPRIL. [Suspect]
     Active Substance: LISINOPRIL
     Indication: HYPERTENSION
     Dosage: 6 MONTHS, 1 PILL, ONCE DAILY
  2. LIPITOR 2OMG [Concomitant]
  3. NOVOLOG SQ FLEXPEN [Concomitant]
  4. VITAMIN D [Concomitant]
     Active Substance: CHOLECALCIFEROL
  5. ACIDOPHILUS PROBIOTICS [Concomitant]
  6. LANTUS SOLOSTAR [Concomitant]
     Active Substance: INSULIN GLARGINE
  7. FUROSEMIDE-20MG [Concomitant]
  8. CELEXA [Concomitant]
     Active Substance: CITALOPRAM HYDROBROMIDE
  9. ATORVASTATIN [Concomitant]
     Active Substance: ATORVASTATIN
  10. RESTASIS [Concomitant]
     Active Substance: CYCLOSPORINE

REACTIONS (4)
  - Dizziness [None]
  - Rhinorrhoea [None]
  - Cough [None]
  - Headache [None]

NARRATIVE: CASE EVENT DATE: 20150217
